FAERS Safety Report 8336798-X (Version None)
Quarter: 2012Q2

REPORT INFORMATION
  Report Type: 
  Country: None (occurrence: None)
  Receive Date: 20120504
  Receipt Date: 20120424
  Transmission Date: 20120825
  Serious: Yes (Hospitalization)
  Sender: FDA-Public Use
  Company Number: JP-JNJFOC-20120413816

PATIENT
  Sex: Female

DRUGS (4)
  1. VITAMIN PREPARATION COMPOUND [Concomitant]
     Route: 048
  2. CYANOCOBALAMIN [Concomitant]
     Route: 048
  3. ISOSORBIDE DINITRATE [Concomitant]
     Route: 061
  4. GALANTAMINE HYDROBROMIDE [Suspect]
     Indication: DEMENTIA ALZHEIMER'S TYPE
     Route: 048
     Dates: start: 20110101, end: 20120424

REACTIONS (2)
  - GASTROINTESTINAL HAEMORRHAGE [None]
  - ANAEMIA [None]
